FAERS Safety Report 15018273 (Version 1)
Quarter: 2018Q2

REPORT INFORMATION
  Report Type: Spontaneous
  Country: US (occurrence: US)
  Receive Date: 20180615
  Receipt Date: 20180615
  Transmission Date: 20180711
  Serious: No
  Sender: FDA-Public Use
  Company Number: US-BIOGEN-2018BI00595341

PATIENT
  Sex: Female

DRUGS (1)
  1. TYSABRI [Suspect]
     Active Substance: NATALIZUMAB
     Indication: MULTIPLE SCLEROSIS
     Dosage: INFUSED FOR 1 HOUR
     Route: 042
     Dates: start: 20140725

REACTIONS (9)
  - Tooth loss [Unknown]
  - Constipation [Unknown]
  - Nausea [Unknown]
  - Dizziness [Unknown]
  - Temperature intolerance [Unknown]
  - Helplessness [Unknown]
  - Urinary tract infection [Unknown]
  - Hypotension [Unknown]
  - Tremor [Unknown]
